FAERS Safety Report 9036486 (Version 1)
Quarter: 2013Q1

REPORT INFORMATION
  Report Type: Spontaneous
  Country: US (occurrence: None)
  Receive Date: 20130117
  Receipt Date: 20130117
  Transmission Date: 20140127
  Serious: Yes (Other)
  Sender: FDA-Public Use
  Company Number: None

PATIENT
  Age: 61 Year
  Sex: Female
  Weight: 70.76 kg

DRUGS (1)
  1. LEVOFLOXACIN [Suspect]
     Route: 048
     Dates: start: 20121227, end: 20130110

REACTIONS (8)
  - Musculoskeletal pain [None]
  - Arthralgia [None]
  - Gait disturbance [None]
  - Movement disorder [None]
  - Insomnia [None]
  - Tendonitis [None]
  - Product quality issue [None]
  - Impaired work ability [None]
